FAERS Safety Report 11228694 (Version 2)
Quarter: 2015Q3

REPORT INFORMATION
  Report Type: Spontaneous
  Country: JP (occurrence: JP)
  Receive Date: 20150630
  Receipt Date: 20150708
  Transmission Date: 20151125
  Serious: Yes (Death, Other)
  Sender: FDA-Public Use
  Company Number: PHJP2015JP010430

PATIENT
  Age: 28 Year
  Sex: Female

DRUGS (3)
  1. PREDNISOLONE. [Suspect]
     Active Substance: PREDNISOLONE
     Indication: LUPUS NEPHRITIS
     Dosage: 40 MG, UNK
     Route: 065
  2. HYDRALAZINE [Suspect]
     Active Substance: HYDRALAZINE HYDROCHLORIDE
     Indication: GESTATIONAL HYPERTENSION
     Route: 048
  3. PREDNISOLONE. [Suspect]
     Active Substance: PREDNISOLONE
     Indication: SYSTEMIC LUPUS ERYTHEMATOSUS
     Dosage: 20 MG, QD
     Route: 065

REACTIONS (11)
  - Systemic lupus erythematosus [Unknown]
  - Premature labour [Unknown]
  - Pre-eclampsia [Unknown]
  - Blood pressure increased [Unknown]
  - Pulmonary oedema [Unknown]
  - Butterfly rash [Unknown]
  - Platelet count increased [Unknown]
  - Protein urine present [Unknown]
  - Sepsis [Fatal]
  - Chronic kidney disease [Unknown]
  - Maternal exposure during pregnancy [Unknown]
